FAERS Safety Report 8327075-1 (Version None)
Quarter: 2012Q2

REPORT INFORMATION
  Report Type: 
  Country: None (occurrence: None)
  Receive Date: 20120501
  Receipt Date: 20120117
  Transmission Date: 20120825
  Serious: Yes (Other)
  Sender: FDA-Public Use
  Company Number: US-SANOFI-AVENTIS-2012SA003624

PATIENT

DRUGS (1)
  1. APIDRA [Suspect]
     Dosage: VIA INSULIN PUMP
     Route: 065

REACTIONS (2)
  - THERAPEUTIC RESPONSE UNEXPECTED [None]
  - HYPOGLYCAEMIC SEIZURE [None]
